FAERS Safety Report 9654457 (Version 2)
Quarter: 2013Q4

REPORT INFORMATION
  Report Type: Spontaneous
  Country: US (occurrence: US)
  Receive Date: 20131029
  Receipt Date: 20131106
  Transmission Date: 20140711
  Serious: Yes (Other)
  Sender: FDA-Public Use
  Company Number: CHPA2013US016254

PATIENT
  Sex: Female

DRUGS (1)
  1. EXCEDRIN UNKNOWN [Suspect]
     Indication: MIGRAINE
     Dosage: UNK, UNK
     Route: 048

REACTIONS (5)
  - Self-injurious ideation [Unknown]
  - Crying [Unknown]
  - Insomnia [Unknown]
  - Nausea [Unknown]
  - Drug ineffective [Unknown]
